FAERS Safety Report 18167549 (Version 1)
Quarter: 2020Q3

REPORT INFORMATION
  Report Type: Spontaneous
  Country: PL (occurrence: PL)
  Receive Date: 20200819
  Receipt Date: 20200819
  Transmission Date: 20201103
  Serious: Yes (Other)
  Sender: FDA-Public Use
  Company Number: PL-TEVA-2020-PL-1814988

PATIENT
  Age: 65 Year
  Sex: Female

DRUGS (6)
  1. METHOTREXATE. [Suspect]
     Active Substance: METHOTREXATE
     Indication: ERYTHEMA ANNULARE
     Route: 065
  2. DOXYCYCLINE. [Suspect]
     Active Substance: DOXYCYCLINE
     Indication: ERYTHEMA ANNULARE
     Dosage: 100 MILLIGRAM DAILY;
     Route: 065
  3. DAPSONE. [Suspect]
     Active Substance: DAPSONE
     Indication: ERYTHEMA ANNULARE
     Dosage: 100 MILLIGRAM DAILY;
     Route: 065
  4. PREDNISONE. [Suspect]
     Active Substance: PREDNISONE
     Indication: ERYTHEMA ANNULARE
     Dosage: 40 MILLIGRAM DAILY;
     Route: 048
  5. HYDROXYCHLOROQUINE [Suspect]
     Active Substance: HYDROXYCHLOROQUINE
     Indication: ERYTHEMA ANNULARE
     Dosage: 400 MILLIGRAM DAILY;
     Route: 065
  6. MEPOLIZUMAB [Suspect]
     Active Substance: MEPOLIZUMAB
     Indication: ERYTHEMA ANNULARE
     Route: 058

REACTIONS (3)
  - Off label use [Unknown]
  - Haemolytic anaemia [Unknown]
  - Dyspnoea [Unknown]
